FAERS Safety Report 5452646-X (Version None)
Quarter: 2007Q3

REPORT INFORMATION
  Report Type: 
  Country: None (occurrence: None)
  Receive Date: 20070914
  Receipt Date: 20070912
  Transmission Date: 20080115
  Serious: Yes (Death, Other)
  Sender: FDA-Public Use
  Company Number: KR-BRISTOL-MYERS SQUIBB COMPANY-13905211

PATIENT

DRUGS (3)
  1. IFOSFAMIDE [Suspect]
     Indication: CERVIX CARCINOMA RECURRENT
     Route: 042
  2. PACLITAXEL [Suspect]
     Indication: CERVIX CARCINOMA RECURRENT
     Route: 042
  3. CISPLATIN [Suspect]
     Indication: CERVIX CARCINOMA RECURRENT
     Route: 042

REACTIONS (4)
  - DEATH [None]
  - MALIGNANT NEOPLASM PROGRESSION [None]
  - NEUROTOXICITY [None]
  - NEUTROPENIA [None]
